FAERS Safety Report 13440541 (Version 1)
Quarter: 2017Q2

REPORT INFORMATION
  Report Type: Spontaneous
  Country: US (occurrence: US)
  Receive Date: 20170413
  Receipt Date: 20170413
  Transmission Date: 20170830
  Serious: Yes (Other)
  Sender: FDA-Public Use
  Company Number: US-ASTELLAS-2016US049779

PATIENT
  Sex: Female

DRUGS (12)
  1. VITAMIN D                          /00107901/ [Concomitant]
     Active Substance: ERGOCALCIFEROL
     Indication: PRODUCT USED FOR UNKNOWN INDICATION
     Dosage: UNK UNK, TWICE DAILY (AM AND PM)U
     Route: 065
  2. RANITIDINE. [Concomitant]
     Active Substance: RANITIDINE
     Indication: GASTRIC PH DECREASED
     Dosage: 150 MG, TWICE DAILY (AM AND PM)
     Route: 065
  3. CELEXA [Concomitant]
     Active Substance: CITALOPRAM HYDROBROMIDE
     Indication: ANXIETY
     Dosage: 10 MG, ONCE DAILY (AM)
     Route: 065
  4. BABY ASPIRIN [Concomitant]
     Active Substance: ASPIRIN
     Indication: PRODUCT USED FOR UNKNOWN INDICATION
     Dosage: 81 MG, ONCE DAILY (PM)
     Route: 065
  5. IMURAN [Concomitant]
     Active Substance: AZATHIOPRINE
     Indication: IMMUNOSUPPRESSION
     Dosage: 50 MG, ONCE DAILY (PM)
     Route: 065
  6. NORVASC [Concomitant]
     Active Substance: AMLODIPINE BESYLATE
     Indication: BLOOD PRESSURE INCREASED
     Dosage: 7.5 MG, ONCE DAILY (PM)
     Route: 065
  7. PRINIVIL [Concomitant]
     Active Substance: LISINOPRIL
     Indication: HYPERTENSION
     Dosage: 2.5 MG, ONCE DAILY (PM)N
     Route: 065
  8. PROGRAF [Suspect]
     Active Substance: TACROLIMUS\TACROLIMUS ANHYDROUS
     Indication: RENAL TRANSPLANT
     Route: 048
     Dates: end: 2013
  9. CALCIUM [Concomitant]
     Active Substance: CALCIUM
     Indication: PRODUCT USED FOR UNKNOWN INDICATION
     Dosage: UNK UNK, TWICE DAILY (AM AND PM)
     Route: 065
  10. LIPITOR [Concomitant]
     Active Substance: ATORVASTATIN CALCIUM
     Indication: BLOOD CHOLESTEROL
     Dosage: 80 MG, ONCE DAILY (PM)
     Route: 065
  11. PREDNISONE. [Concomitant]
     Active Substance: PREDNISONE
     Indication: KIDNEY TRANSPLANT REJECTION
     Dosage: 5 MG, ONCE DAILY (AM)
     Route: 065
  12. COENZYME Q10 [Concomitant]
     Active Substance: UBIDECARENONE
     Indication: PRODUCT USED FOR UNKNOWN INDICATION
     Dosage: 300 MG, ONCE DAILY (AM)
     Route: 065

REACTIONS (1)
  - Seizure [Unknown]

NARRATIVE: CASE EVENT DATE: 2011
